FAERS Safety Report 7991299-3 (Version None)
Quarter: 2011Q4

REPORT INFORMATION
  Report Type: 
  Country: None (occurrence: None)
  Receive Date: 20111219
  Receipt Date: 20111212
  Transmission Date: 20120403
  Serious: Yes (Other)
  Sender: FDA-Public Use
  Company Number: US-ELI_LILLY_AND_COMPANY-US201107006519

PATIENT
  Sex: Female
  Weight: 165.53 kg

DRUGS (15)
  1. XALATAN [Concomitant]
  2. REGLAN [Concomitant]
  3. BYETTA [Suspect]
     Dosage: 10 UG, BID
     Dates: end: 20090101
  4. LASIX [Concomitant]
  5. ASPIRIN [Concomitant]
  6. BYETTA [Suspect]
     Dosage: UNK UNK, UNKNOWN
     Dates: start: 20060601, end: 20071001
  7. TOPAMAX [Concomitant]
  8. ULTRAM [Concomitant]
  9. NEXIUM [Concomitant]
  10. INSULIN [Concomitant]
  11. DAYPRO [Concomitant]
  12. COREG [Concomitant]
  13. DILANTIN [Concomitant]
  14. NOVOLOG MIX 70/30 [Concomitant]
  15. LIPITOR [Concomitant]

REACTIONS (4)
  - PANCREATITIS [None]
  - RENAL FAILURE ACUTE [None]
  - CEREBROVASCULAR ACCIDENT [None]
  - RENAL FAILURE CHRONIC [None]
